FAERS Safety Report 4596687-3 (Version None)
Quarter: 2005Q1

REPORT INFORMATION
  Report Type: 
  Country: None (occurrence: None)
  Receive Date: 20050228
  Receipt Date: 20050222
  Transmission Date: 20050727
  Serious: Yes (Life-Threatening, Hospitalization, Other)
  Sender: FDA-Public Use
  Company Number: HQWYE502723FEB05

PATIENT
  Age: 45 Year
  Sex: Male
  Weight: 85 kg

DRUGS (5)
  1. RAPAMUNE [Suspect]
     Indication: PROPHYLAXIS AGAINST TRANSPLANT REJECTION
     Dosage: 5 MG 1X PER 1 DAY, ORAL
     Route: 048
     Dates: start: 20041013
  2. BACTRIM [Suspect]
  3. BETA BLOCKING AGENTS (BETA BLOCKING AGENTS) [Suspect]
  4. PROGRAF [Suspect]
  5. CORTICOSTEROID [Concomitant]

REACTIONS (3)
  - BLOOD CREATININE INCREASED [None]
  - BLOOD PRESSURE INCREASED [None]
  - HYPERKALAEMIA [None]
